FAERS Safety Report 7205898-X (Version None)
Quarter: 2010Q4

REPORT INFORMATION
  Report Type: 
  Country: None (occurrence: None)
  Receive Date: 20101231
  Receipt Date: 20101228
  Transmission Date: 20110411
  Serious: Yes (Death, Other)
  Sender: FDA-Public Use
  Company Number: US-AMGEN-USASP2010009517

PATIENT

DRUGS (7)
  1. NPLATE [Suspect]
     Indication: MYELODYSPLASTIC SYNDROME
     Dosage: 300 A?G, UNK
     Route: 058
     Dates: start: 20100716, end: 20100730
  2. NPLATE [Suspect]
     Indication: OVARIAN CANCER
  3. CORTICOSTEROIDS [Concomitant]
  4. IMMUNOGLOBULINS [Concomitant]
  5. PROCHLORPERAZINE                   /00013302/ [Concomitant]
     Dosage: 10 MG, UNK
     Dates: start: 20100429, end: 20101129
  6. VICODIN [Concomitant]
     Dosage: 500 MG, UNK
     Dates: start: 20100625, end: 20101129
  7. AMICAR [Concomitant]
     Dosage: 1000 MG, QID
     Dates: start: 20100817, end: 20101214

REACTIONS (4)
  - DEATH [None]
  - DRUG INEFFECTIVE [None]
  - METASTASES TO CENTRAL NERVOUS SYSTEM [None]
  - OVARIAN CANCER METASTATIC [None]
